FAERS Safety Report 17401686 (Version 1)
Quarter: 2020Q1

REPORT INFORMATION
  Report Type: Spontaneous
  Country: US (occurrence: US)
  Receive Date: 20200211
  Receipt Date: 20200211
  Transmission Date: 20200409
  Serious: No
  Sender: FDA-Public Use
  Company Number: US-ALLERGAN-1913813US

PATIENT
  Sex: Female

DRUGS (4)
  1. SOOTHE XP [Concomitant]
     Active Substance: LIGHT MINERAL OIL\MINERAL OIL
     Indication: DRY EYE
     Dosage: UNK
     Route: 065
  2. MAXITROL [Concomitant]
     Active Substance: DEXAMETHASONE\NEOMYCIN SULFATE\POLYMYXIN B SULFATE
     Indication: ANTIBIOTIC THERAPY
     Dosage: USED FOR 1 WEEK
     Route: 047
  3. FML [Suspect]
     Active Substance: FLUOROMETHOLONE
     Dosage: UNK UNK, BID
     Route: 047
     Dates: start: 201902
  4. FML [Suspect]
     Active Substance: FLUOROMETHOLONE
     Indication: POST PROCEDURAL OEDEMA
     Dosage: UNK UNK, QD
     Route: 047
     Dates: start: 201903

REACTIONS (3)
  - Tongue discomfort [Not Recovered/Not Resolved]
  - Oral discomfort [Not Recovered/Not Resolved]
  - Tongue coated [Recovered/Resolved]

NARRATIVE: CASE EVENT DATE: 201903
